FAERS Safety Report 6209072-5 (Version None)
Quarter: 2009Q2

REPORT INFORMATION
  Report Type: 
  Country: None (occurrence: None)
  Receive Date: 20090529
  Receipt Date: 20090519
  Transmission Date: 20091009
  Serious: Yes (Life-Threatening, Hospitalization)
  Sender: FDA-Public Use
  Company Number: DE-BIOGENIDEC-2009BI013266

PATIENT
  Age: 44 Year
  Sex: Male

DRUGS (10)
  1. TYSABRI [Suspect]
     Indication: MULTIPLE SCLEROSIS
     Route: 042
     Dates: start: 20080304, end: 20080905
  2. VITAMIN E [Concomitant]
  3. RESTEX [Concomitant]
     Route: 048
  4. ZOPICLON [Concomitant]
     Route: 048
  5. PANTOZOL [Concomitant]
  6. IBUPROFEN [Concomitant]
  7. LACTULOSE [Concomitant]
  8. NOVAMIN [Concomitant]
  9. CLEXANE [Concomitant]
  10. ACETYLCYSTEINE [Concomitant]

REACTIONS (1)
  - PNEUMOTHORAX [None]
